FAERS Safety Report 4855434-8 (Version None)
Quarter: 2005Q4

REPORT INFORMATION
  Report Type: 
  Country: None (occurrence: None)
  Receive Date: 20051125
  Receipt Date: 20050223
  Transmission Date: 20060501
  Serious: Yes (Other)
  Sender: FDA-Public Use
  Company Number: 800287

PATIENT
  Age: 78 Year
  Sex: Male
  Weight: 94.8018 kg

DRUGS (14)
  1. DIANEAL [Suspect]
     Indication: PERITONEAL DIALYSIS
     Dosage: IP
     Dates: start: 20030531
  2. DIANEAL [Concomitant]
  3. ASPIRIN [Concomitant]
  4. FLORINEF [Concomitant]
  5. LORTAB [Concomitant]
  6. NEPHRO VITE [Concomitant]
  7. PHOSLO [Concomitant]
  8. POTASSIUM CHLORIDE [Concomitant]
  9. SYNTHROID [Concomitant]
  10. XANAX [Concomitant]
  11. ZETIA [Concomitant]
  12. EPOGEN [Concomitant]
  13. FLORINEF [Concomitant]
  14. ZETIA [Concomitant]

REACTIONS (1)
  - PERITONITIS [None]
